FAERS Safety Report 8866479 (Version 1)
Quarter: 2012Q4

REPORT INFORMATION
  Report Type: 
  Country: US (occurrence: US)
  Receive Date: 20121025
  Receipt Date: 20121025
  Transmission Date: 20130627
  Serious: No
  Sender: FDA-Public Use
  Company Number: US-BAYER-2012-112296

PATIENT
  Age: 75 Year
  Sex: Male
  Weight: 87.08 kg

DRUGS (5)
  1. ALEVE CAPLET/TABLET,MIDOL EXTENDED RELIEF CAPLET [Suspect]
     Indication: ARTHRITIS
     Dosage: 1 DF, BID
     Route: 048
  2. MEDICATION FOR IRREGULAR HEART BEAT [Concomitant]
  3. PARKINSONS DISEASE MEDICATION [Concomitant]
  4. DEPRESSION MEDICATION [Concomitant]
  5. BAYER ASPIRIN [Concomitant]
     Indication: MYOCARDIAL INFARCT PROPHYLAXIS
     Dosage: UNK

REACTIONS (1)
  - No adverse event [None]
